FAERS Safety Report 4852244-2 (Version None)
Quarter: 2005Q4

REPORT INFORMATION
  Report Type: 
  Country: None (occurrence: None)
  Receive Date: 20051213
  Receipt Date: 20050913
  Transmission Date: 20060501
  Serious: Yes (Life-Threatening, Hospitalization)
  Sender: FDA-Public Use
  Company Number: 200513035FR

PATIENT
  Age: 29 Year
  Sex: Male
  Weight: 66 kg

DRUGS (1)
  1. RIFATER [Suspect]
     Indication: LYMPH NODE TUBERCULOSIS
     Route: 048
     Dates: start: 20050611, end: 20050715

REACTIONS (11)
  - ALANINE AMINOTRANSFERASE INCREASED [None]
  - ASPARTATE AMINOTRANSFERASE INCREASED [None]
  - BLOOD ALKALINE PHOSPHATASE INCREASED [None]
  - BLOOD BILIRUBIN INCREASED [None]
  - CYTOLYTIC HEPATITIS [None]
  - EOSINOPHILIA [None]
  - HEPATIC FAILURE [None]
  - HEPATIC TRAUMA [None]
  - HEPATITIS [None]
  - HEPATOMEGALY [None]
  - LIPASE INCREASED [None]
